FAERS Safety Report 7380719-3 (Version None)
Quarter: 2011Q1

REPORT INFORMATION
  Report Type: 
  Country: None (occurrence: None)
  Receive Date: 20110321
  Receipt Date: 20110316
  Transmission Date: 20110831
  Serious: Yes (Hospitalization)
  Sender: FDA-Public Use
  Company Number: SP03557

PATIENT
  Age: 70 Year
  Sex: Female
  Weight: 66.6788 kg

DRUGS (7)
  1. FUROSEMIDE [Concomitant]
  2. POTASSIUM [Concomitant]
  3. XIFAXAN [Suspect]
     Indication: HEPATIC ENCEPHALOPATHY
     Dosage: 550 MG(550 MG, SEE TEXT), ORAL
     Route: 048
     Dates: start: 20110101
  4. SPIRONOLACTONE [Concomitant]
  5. LACTULOSE [Concomitant]
  6. PROTONIX [Concomitant]
  7. INDERAL [Concomitant]

REACTIONS (5)
  - OEDEMA PERIPHERAL [None]
  - PRURITUS GENERALISED [None]
  - JOINT SWELLING [None]
  - FATIGUE [None]
  - GASTRIC HAEMORRHAGE [None]
